FAERS Safety Report 16769707 (Version 1)
Quarter: 2019Q3

REPORT INFORMATION
  Report Type: Report from Study
  Country: None (occurrence: CO)
  Receive Date: 20190904
  Receipt Date: 20190904
  Transmission Date: 20191005
  Serious: Yes (Other)
  Sender: FDA-Public Use
  Company Number: CO-ABBVIE-19K-036-2731896-00

PATIENT
  Sex: Male
  Weight: 73 kg

DRUGS (3)
  1. HUMIRA [Suspect]
     Active Substance: ADALIMUMAB
     Indication: PSORIASIS
     Route: 058
  2. HUMIRA [Suspect]
     Active Substance: ADALIMUMAB
     Indication: PSORIASIS
     Route: 058
     Dates: start: 20140903
  3. GEMFIBROZIL. [Concomitant]
     Active Substance: GEMFIBROZIL
     Indication: PRODUCT USED FOR UNKNOWN INDICATION

REACTIONS (7)
  - Blood glucose abnormal [Recovering/Resolving]
  - Weight decreased [Recovering/Resolving]
  - Depression [Recovering/Resolving]
  - Skin exfoliation [Recovering/Resolving]
  - Asthenia [Recovering/Resolving]
  - Psoriasis [Recovering/Resolving]
  - Dizziness [Recovering/Resolving]

NARRATIVE: CASE EVENT DATE: 2019
